FAERS Safety Report 8025249-0 (Version None)
Quarter: 2012Q1

REPORT INFORMATION
  Report Type: 
  Country: None (occurrence: None)
  Receive Date: 20120105
  Receipt Date: 20120103
  Transmission Date: 20120608
  Serious: Yes (Other)
  Sender: FDA-Public Use
  Company Number: US-PFIZER INC-2011265808

PATIENT
  Sex: Female

DRUGS (2)
  1. CHANTIX [Suspect]
     Indication: SMOKING CESSATION THERAPY
     Dosage: UNK
     Dates: start: 20080601, end: 20080101
  2. PROZAC [Concomitant]
     Indication: PREMENSTRUAL SYNDROME
     Dosage: UNK
     Dates: start: 19980101, end: 20111001

REACTIONS (5)
  - INTENTIONAL OVERDOSE [None]
  - DEPRESSION [None]
  - MENTAL DISORDER [None]
  - SUICIDE ATTEMPT [None]
  - ANXIETY [None]
